FAERS Safety Report 14145471 (Version 1)
Quarter: 2017Q4

REPORT INFORMATION
  Report Type: Spontaneous
  Country: CA (occurrence: CA)
  Receive Date: 20171031
  Receipt Date: 20171031
  Transmission Date: 20180321
  Serious: Yes (Death)
  Sender: FDA-Public Use
  Company Number: CA-PFIZER INC-2016581886

PATIENT
  Age: 66 Year
  Sex: Female

DRUGS (3)
  1. IBRANCE [Suspect]
     Active Substance: PALBOCICLIB
     Indication: BREAST CANCER METASTATIC
     Dosage: 125 MG, CYCLIC (DAILY FOR 21 DAYS, OFF FOR 7 DAYS)
     Route: 048
     Dates: start: 20170117
  2. VITAMIN D [Concomitant]
     Active Substance: CHOLECALCIFEROL
     Dosage: UNK, DAILY
  3. FRAGMIN [Concomitant]
     Active Substance: DALTEPARIN SODIUM
     Dosage: 12500 IU, 1X/DAY

REACTIONS (3)
  - Product use in unapproved indication [Unknown]
  - Death [Fatal]
  - Tumour marker increased [Unknown]
